FAERS Safety Report 14431091 (Version 1)
Quarter: 2018Q1

REPORT INFORMATION
  Report Type: Report from Study
  Country: KR (occurrence: KR)
  Receive Date: 20180124
  Receipt Date: 20180124
  Transmission Date: 20180509
  Serious: Yes (Other)
  Sender: FDA-Public Use
  Company Number: KR-SUN PHARMACEUTICAL INDUSTRIES LTD-2018RR-161087

PATIENT

DRUGS (2)
  1. WARFARIN [Suspect]
     Active Substance: WARFARIN
     Indication: ANTICOAGULANT THERAPY
     Route: 065
  2. ASPIRIN. [Suspect]
     Active Substance: ASPIRIN
     Indication: ANTICOAGULANT THERAPY
     Dosage: 100 MG, DAILY
     Route: 065

REACTIONS (2)
  - Gastric ulcer haemorrhage [Unknown]
  - Melaena [Unknown]
